FAERS Safety Report 9881289 (Version 2)
Quarter: 2014Q1

REPORT INFORMATION
  Report Type: Spontaneous
  Country: FR (occurrence: FR)
  Receive Date: 20140207
  Receipt Date: 20140314
  Transmission Date: 20141002
  Serious: Yes (Other)
  Sender: FDA-Public Use
  Company Number: FR-ABBVIE-14P-056-1197933-00

PATIENT
  Age: 72 Year
  Sex: Female
  Weight: 75 kg

DRUGS (5)
  1. HUMIRA [Suspect]
     Indication: PSORIASIS
     Route: 058
     Dates: start: 201105, end: 201307
  2. NOVONORM [Concomitant]
     Indication: PRODUCT USED FOR UNKNOWN INDICATION
  3. TAREG [Concomitant]
     Indication: PRODUCT USED FOR UNKNOWN INDICATION
  4. AMLOR [Concomitant]
     Indication: PRODUCT USED FOR UNKNOWN INDICATION
  5. BEFIZAL [Concomitant]
     Indication: PRODUCT USED FOR UNKNOWN INDICATION

REACTIONS (1)
  - Adenocarcinoma pancreas [Not Recovered/Not Resolved]
